FAERS Safety Report 5143488-3 (Version None)
Quarter: 2006Q4

REPORT INFORMATION
  Report Type: 
  Country: None (occurrence: None)
  Receive Date: 20061103
  Receipt Date: 20061003
  Transmission Date: 20070319
  Serious: Yes (Hospitalization)
  Sender: FDA-Public Use
  Company Number: JP-JPN-A200604005

PATIENT
  Age: 75 Year
  Sex: Female

DRUGS (9)
  1. PAXIL [Suspect]
     Indication: DEPRESSION
     Dosage: 20MG PER DAY
     Route: 048
     Dates: start: 20060512, end: 20060530
  2. PAXIL [Suspect]
     Dosage: 10MG PER DAY
     Route: 048
     Dates: start: 20060711, end: 20060720
  3. GASMOTIN [Concomitant]
     Indication: STOMACH DISCOMFORT
     Route: 048
     Dates: start: 20060619
  4. URSO [Concomitant]
     Indication: HEPATIC CIRRHOSIS
     Route: 048
     Dates: start: 20060327
  5. LENDORMIN [Concomitant]
     Indication: INSOMNIA
     Route: 048
  6. OMEPRAL [Concomitant]
     Indication: STOMACH DISCOMFORT
     Route: 048
     Dates: start: 20060627
  7. RIZE [Concomitant]
     Indication: INSOMNIA
     Route: 048
     Dates: start: 20060416, end: 20060526
  8. MUCOSTA [Concomitant]
     Indication: GASTRITIS
     Route: 048
     Dates: start: 20060327
  9. AMOXAPINE [Concomitant]
     Indication: DEPRESSION
     Dosage: 20MG PER DAY
     Route: 048

REACTIONS (7)
  - DECREASED APPETITE [None]
  - DEPRESSED LEVEL OF CONSCIOUSNESS [None]
  - EPIGASTRIC DISCOMFORT [None]
  - HYPONATRAEMIA [None]
  - INAPPROPRIATE ANTIDIURETIC HORMONE SECRETION [None]
  - MALAISE [None]
  - NAUSEA [None]
